FAERS Safety Report 9867968 (Version 3)
Quarter: 2014Q2

REPORT INFORMATION
  Report Type: Spontaneous
  Country: CA (occurrence: CA)
  Receive Date: 20140204
  Receipt Date: 20140603
  Transmission Date: 20141212
  Serious: Yes (Death, Hospitalization, Other)
  Sender: FDA-Public Use
  Company Number: CA-PFIZER INC-2014029756

PATIENT
  Age: 60 Year
  Sex: Female

DRUGS (10)
  1. PANTOPRAZOLE [Suspect]
     Dosage: UNK
  2. JAKAVI [Suspect]
     Indication: MYELOFIBROSIS
     Dosage: 5 MG, 2X/DAY
     Route: 048
     Dates: start: 20131204
  3. JAKAVI [Suspect]
     Dosage: 5 MG, 1X/DAY
     Route: 048
  4. JAKAVI [Suspect]
     Dosage: UNK
     Route: 048
     Dates: end: 20140218
  5. LORAZEPAM [Concomitant]
     Dosage: UNK
  6. MULTIVIT [Concomitant]
     Dosage: UNK
  7. OMEGA 3 [Concomitant]
     Dosage: UNK
  8. PREDNISONE [Concomitant]
     Dosage: UNK
  9. HYDROMORPH CONTIN [Concomitant]
  10. LYRICA [Concomitant]
     Dosage: UNK

REACTIONS (5)
  - Death [Fatal]
  - Blood urine present [Unknown]
  - Haemoglobin decreased [Recovering/Resolving]
  - Platelet count decreased [Unknown]
  - Nephrolithiasis [Unknown]
